FAERS Safety Report 4864635-4 (Version None)
Quarter: 2005Q4

REPORT INFORMATION
  Report Type: 
  Country: None (occurrence: None)
  Receive Date: 20051201
  Receipt Date: 20050703
  Transmission Date: 20060501
  Serious: No
  Sender: FDA-Public Use
  Company Number: 2005PV000234

PATIENT
  Age: 58 Year
  Sex: Female
  Weight: 87.9978 kg

DRUGS (9)
  1. BYETTA [Suspect]
     Indication: DIABETES MELLITUS NON-INSULIN-DEPENDENT
     Dosage: 5 UG, BID, SC
     Route: 058
     Dates: start: 20050630
  2. CEFUROXIME AXETIL [Concomitant]
  3. ZETIA [Concomitant]
  4. DIOVAN [Concomitant]
  5. SYNTHROID [Concomitant]
  6. COREG [Concomitant]
  7. LANTUS [Concomitant]
  8. AMARYL [Concomitant]
  9. LOTREL [Concomitant]

REACTIONS (5)
  - BLOOD GLUCOSE INCREASED [None]
  - ERUCTATION [None]
  - GASTROOESOPHAGEAL REFLUX DISEASE [None]
  - NAUSEA [None]
  - POSTNASAL DRIP [None]
